FAERS Safety Report 18368172 (Version 4)
Quarter: 2021Q3

REPORT INFORMATION
  Report Type: Spontaneous
  Country: GB (occurrence: GB)
  Receive Date: 20201009
  Receipt Date: 20210917
  Transmission Date: 20211014
  Serious: Yes (Other)
  Sender: FDA-Public Use
  Company Number: GB-BAUSCH-BL-2020-028706

PATIENT
  Age: 51 Year
  Sex: Male

DRUGS (53)
  1. SODIUM CHLORIDE. [Suspect]
     Active Substance: SODIUM CHLORIDE
     Indication: MEDICATION DILUTION
     Route: 065
     Dates: start: 20200825, end: 20200825
  2. ENSURE [Suspect]
     Active Substance: AMINO ACIDS\DEXTROSE\ELECTROLYTES NOS\SOYBEAN OIL\VITAMINS
     Indication: NUTRITIONAL SUPPLEMENTATION
     Route: 065
  3. APREPITANT. [Suspect]
     Active Substance: APREPITANT
     Dosage: DOSE: 1 UNIT UNSPECIFIED
     Route: 065
  4. NAUZELIN [Suspect]
     Active Substance: DOMPERIDONE
     Route: 065
  5. CISPLATIN. [Suspect]
     Active Substance: CISPLATIN
     Indication: GERM CELL NEOPLASM
     Dosage: 79 MG, IN 1 LITER (NOT SPECIFIED) (79 MG)
     Route: 065
     Dates: start: 20200825
  6. CALCIUM [Suspect]
     Active Substance: CALCIUM
     Dosage: UNKNOWN
     Route: 065
  7. COLECALCIFEROL [Suspect]
     Active Substance: CHOLECALCIFEROL
     Route: 065
  8. DEXAMETHASONE. [Suspect]
     Active Substance: DEXAMETHASONE
     Indication: SUPPORTIVE CARE
     Route: 065
     Dates: start: 20200825
  9. NICOTINE. [Suspect]
     Active Substance: NICOTINE
     Indication: DRUG THERAPY
     Dosage: PATCH
     Route: 065
  10. NAUZELIN [Suspect]
     Active Substance: DOMPERIDONE
     Route: 065
     Dates: start: 20200825
  11. CALCIUM [Suspect]
     Active Substance: CALCIUM
     Indication: MINERAL SUPPLEMENTATION
     Route: 065
  12. CALCIUM [Suspect]
     Active Substance: CALCIUM
     Route: 065
  13. COLECALCIFEROL [Suspect]
     Active Substance: CHOLECALCIFEROL
     Dosage: UNK UNK, QD(TABLET(1D) / UNK, QD (TABLET(1D)) )
     Route: 065
  14. CALCIUM + VITAMIN D3 [Suspect]
     Active Substance: CALCIUM CARBONATE\CHOLECALCIFEROL
     Dosage: DOSE: 1 (UNSPECIFIED UNIT)
     Route: 065
  15. THIAMINE HYDROCHLORIDE. [Suspect]
     Active Substance: THIAMINE HYDROCHLORIDE
     Indication: PRODUCT USED FOR UNKNOWN INDICATION
     Dosage: 1 DOSAGE FORM
     Route: 065
  16. THIAMINE HYDROCHLORIDE. [Suspect]
     Active Substance: THIAMINE HYDROCHLORIDE
     Route: 065
  17. ETOPOSIDE. [Suspect]
     Active Substance: ETOPOSIDE
     Indication: GERM CELL NEOPLASM
     Route: 065
     Dates: start: 202007
  18. ETOPOSIDE. [Suspect]
     Active Substance: ETOPOSIDE
     Dosage: IN 1 LITER 2 BAGS (360 MG)
     Route: 065
     Dates: start: 20200825, end: 20200825
  19. ETOPOSIDE. [Suspect]
     Active Substance: ETOPOSIDE
     Route: 065
     Dates: start: 202007
  20. ENSURE [Suspect]
     Active Substance: AMINO ACIDS\DEXTROSE\ELECTROLYTES NOS\SOYBEAN OIL\VITAMINS
     Route: 065
  21. ADCAL D3 [Suspect]
     Active Substance: CALCIUM CARBONATE\CHOLECALCIFEROL
     Dosage: DOSE 1 (UNSPECIFIED UNIT)
     Route: 065
  22. PROPYPHENAZONE [Suspect]
     Active Substance: PROPYPHENAZONE
     Route: 065
  23. PHENYLBUTAZONE [Suspect]
     Active Substance: PHENYLBUTAZONE
     Route: 065
  24. CALCIUM PHOSPHATE TRIBASIC [Suspect]
     Active Substance: TRIBASIC CALCIUM PHOSPHATE
     Indication: MINERAL SUPPLEMENTATION
     Route: 065
  25. ONDANSETRON [Suspect]
     Active Substance: ONDANSETRON
     Indication: SUPPORTIVE CARE
     Dosage: 16 MILLIGRAM, QD (FOR 3 DAYS (16 MG,1 D)), (ORODISPERSIBLE FILM), ORAL DRUG UNSPECIFIED FORM
     Route: 048
     Dates: start: 20200825
  26. ADCAL D3 [Suspect]
     Active Substance: CALCIUM CARBONATE\CHOLECALCIFEROL
     Indication: MINERAL SUPPLEMENTATION
     Route: 065
  27. PROPYPHENAZONE [Suspect]
     Active Substance: PROPYPHENAZONE
     Indication: HYPOVITAMINOSIS
     Route: 065
  28. THIAMINE. [Suspect]
     Active Substance: THIAMINE
     Route: 065
  29. APREPITANT. [Suspect]
     Active Substance: APREPITANT
     Indication: SUPPORTIVE CARE
     Dosage: 1X IN TOTAL
     Route: 065
     Dates: start: 20200825
  30. ADCAL D3 [Suspect]
     Active Substance: CALCIUM CARBONATE\CHOLECALCIFEROL
     Dosage: UNK UNK, QD
     Route: 065
  31. ADCAL D3 [Suspect]
     Active Substance: CALCIUM CARBONATE\CHOLECALCIFEROL
     Dosage: UNK
     Route: 065
  32. NAUZELIN [Suspect]
     Active Substance: DOMPERIDONE
     Indication: SUPPORTIVE CARE
     Dosage: AS REQUIRED
     Route: 048
     Dates: start: 20200825
  33. CALCIUM [Suspect]
     Active Substance: CALCIUM
     Indication: NUTRITIONAL SUPPLEMENTATION
     Dosage: 1 DOSE (UNIT SPECIFIED)
     Route: 065
  34. COLECALCIFEROL [Suspect]
     Active Substance: CHOLECALCIFEROL
     Dosage: DOSE: 1 (UNSPECIFIED UNIT)
     Route: 065
  35. CALCIUM + VITAMIN D3 [Suspect]
     Active Substance: CALCIUM CARBONATE\CHOLECALCIFEROL
     Indication: MINERAL SUPPLEMENTATION
     Route: 065
  36. CALCIUM + VITAMIN D3 [Suspect]
     Active Substance: CALCIUM CARBONATE\CHOLECALCIFEROL
     Route: 065
  37. DOMPERIDONE MALEATE [Suspect]
     Active Substance: DOMPERIDONE MALEATE
     Dosage: 8 MILLIGRAM, QD
     Route: 065
     Dates: start: 20200825
  38. THIAMINE. [Suspect]
     Active Substance: THIAMINE
     Indication: HYPOVITAMINOSIS
     Route: 065
  39. THIAMINE. [Suspect]
     Active Substance: THIAMINE
     Dosage: 1 (UNIT UNSPECIFIED)
     Route: 065
  40. THIAMINE MONONITRATE [Suspect]
     Active Substance: THIAMINE MONONITRATE
     Indication: HYPOVITAMINOSIS
     Route: 065
  41. APREPITANT. [Suspect]
     Active Substance: APREPITANT
     Dosage: IN TOTAL
     Route: 065
     Dates: start: 20200826
  42. ADCAL D3 [Suspect]
     Active Substance: CALCIUM CARBONATE\CHOLECALCIFEROL
     Dosage: TABLET 2 (2 DOSAGE FORMS)
     Route: 065
  43. PHENYLBUTAZONE [Suspect]
     Active Substance: PHENYLBUTAZONE
     Indication: HYPOVITAMINOSIS
     Route: 065
  44. CALCIUM [Suspect]
     Active Substance: CALCIUM
     Indication: MINERAL SUPPLEMENTATION
     Route: 065
  45. DEXAMETHASONE. [Suspect]
     Active Substance: DEXAMETHASONE
     Dosage: 30 MG, QD
     Route: 065
  46. SODIUM CHLORIDE. [Suspect]
     Active Substance: SODIUM CHLORIDE
     Dosage: SODIUM CHLORIDE INTRAVENOUS INFUSION BP 0.9% W/V
     Route: 065
     Dates: start: 20200825, end: 20200825
  47. ENSURE [Suspect]
     Active Substance: AMINO ACIDS\DEXTROSE\ELECTROLYTES NOS\SOYBEAN OIL\VITAMINS
     Route: 065
  48. ADCAL D3 [Suspect]
     Active Substance: CALCIUM CARBONATE\CHOLECALCIFEROL
     Route: 065
  49. NAUZELIN [Suspect]
     Active Substance: DOMPERIDONE
     Dosage: 30 MG, QD, (PRN)
     Route: 065
  50. ADCAL D3 [Suspect]
     Active Substance: CALCIUM CARBONATE\CHOLECALCIFEROL
     Route: 065
  51. COLECALCIFEROL [Suspect]
     Active Substance: CHOLECALCIFEROL
     Indication: MINERAL SUPPLEMENTATION
     Route: 065
  52. COLECALCIFEROL [Suspect]
     Active Substance: CHOLECALCIFEROL
     Dosage: TABLET(1D) / UNK, QD (TABLET(1D))
     Route: 065
  53. DOMPERIDONE MALEATE [Suspect]
     Active Substance: DOMPERIDONE MALEATE
     Indication: SUPPORTIVE CARE
     Dosage: 30 MILLIGRAM, QD (30 MG, QD (PRN (30 MG,1 D))
     Route: 065
     Dates: start: 20200825

REACTIONS (1)
  - Hypersensitivity [Recovered/Resolved]

NARRATIVE: CASE EVENT DATE: 20200825
